FAERS Safety Report 8947275 (Version 1)
Quarter: 2012Q4

REPORT INFORMATION
  Report Type: 
  Country: US (occurrence: US)
  Receive Date: 20121205
  Receipt Date: 20121205
  Transmission Date: 20130627
  Serious: Yes (Other)
  Sender: FDA-Public Use
  Company Number: US-GLAXOSMITHKLINE-A1003926A

PATIENT
  Age: 58 Year
  Sex: Female

DRUGS (14)
  1. BENLYSTA [Suspect]
     Indication: SYSTEMIC LUPUS ERYTHEMATOSUS
     Route: 042
     Dates: start: 20120301
  2. PREDNISONE [Suspect]
  3. IMURAN [Concomitant]
  4. PREDNISONE [Concomitant]
  5. REQUIP [Concomitant]
  6. ZOFRAN [Concomitant]
  7. ALPRAZOLAM [Concomitant]
  8. AMLODIPINE [Concomitant]
  9. ALBUTEROL [Concomitant]
  10. NEXIUM [Concomitant]
  11. TUMS [Concomitant]
  12. ALEVE [Concomitant]
  13. RESTASIS [Concomitant]
  14. PLAQUENIL [Concomitant]

REACTIONS (3)
  - Systemic lupus erythematosus [Not Recovered/Not Resolved]
  - Increased tendency to bruise [Unknown]
  - Drug ineffective [Unknown]
